FAERS Safety Report 22637775 (Version 1)
Quarter: 2023Q2

REPORT INFORMATION
  Report Type: Report from Study
  Country: US (occurrence: None)
  Receive Date: 20230626
  Receipt Date: 20230626
  Transmission Date: 20230721
  Serious: Yes (Other)
  Sender: FDA-Public Use
  Company Number: 2023A145125

PATIENT
  Sex: Female

DRUGS (1)
  1. SYMBICORT [Suspect]
     Active Substance: BUDESONIDE\FORMOTEROL FUMARATE DIHYDRATE
     Dosage: UNKNOWN UNKNOWN
     Route: 055

REACTIONS (2)
  - Hernia [Unknown]
  - Dyspnoea [Unknown]
